FAERS Safety Report 5090775-3 (Version None)
Quarter: 2006Q3

REPORT INFORMATION
  Report Type: 
  Country: None (occurrence: None)
  Receive Date: 20060828
  Receipt Date: 20060818
  Transmission Date: 20061208
  Serious: Yes (Hospitalization)
  Sender: FDA-Public Use
  Company Number: FR-ABBOTT-06P-056-0341082-00

PATIENT
  Age: 69 Year
  Sex: Female

DRUGS (6)
  1. DEPAKOTE [Suspect]
     Indication: BIPOLAR I DISORDER
     Route: 048
     Dates: end: 20060701
  2. CARBAMAZEPINE [Suspect]
     Indication: BIPOLAR I DISORDER
     Route: 048
     Dates: start: 20060606, end: 20060701
  3. CLOMIPRAMINE HCL [Concomitant]
     Indication: DEPRESSION
     Route: 065
     Dates: start: 20060501
  4. CLORAZEPATE DIPOTASSIUM [Concomitant]
     Indication: DRUG USE FOR UNKNOWN INDICATION
     Route: 048
  5. FLUINDIONE [Concomitant]
     Indication: DRUG USE FOR UNKNOWN INDICATION
     Route: 048
  6. LANSOPRAZOLE [Concomitant]
     Indication: DRUG USE FOR UNKNOWN INDICATION
     Route: 048

REACTIONS (8)
  - CHOLESTASIS [None]
  - CYTOLYTIC HEPATITIS [None]
  - DEPRESSION [None]
  - DERMATITIS BULLOUS [None]
  - DRUG RASH WITH EOSINOPHILIA AND SYSTEMIC SYMPTOMS [None]
  - MANIA [None]
  - SKIN LESION [None]
  - TOXIC SKIN ERUPTION [None]
